FAERS Safety Report 11518799 (Version 1)
Quarter: 2015Q3

REPORT INFORMATION
  Report Type: Spontaneous
  Country: AU (occurrence: AU)
  Receive Date: 20150917
  Receipt Date: 20150917
  Transmission Date: 20151125
  Serious: Yes (Other)
  Sender: FDA-Public Use
  Company Number: AU-MYLANLABS-2015M1031261

PATIENT

DRUGS (2)
  1. ATOMOXETINE [Suspect]
     Active Substance: ATOMOXETINE
     Indication: PRODUCT USED FOR UNKNOWN INDICATION
     Route: 065
  2. OXYBUTYNIN [Suspect]
     Active Substance: OXYBUTYNIN
     Indication: PRODUCT USED FOR UNKNOWN INDICATION
     Route: 065

REACTIONS (14)
  - Mental retardation [Recovered/Resolved]
  - Dystonia [Recovered/Resolved]
  - Muscle contractions involuntary [Recovered/Resolved]
  - Extrapyramidal disorder [Recovered/Resolved]
  - Face oedema [Recovered/Resolved]
  - Speech disorder [Recovered/Resolved]
  - Tachycardia [Recovered/Resolved]
  - Tenderness [Recovered/Resolved]
  - Dyspnoea [Recovered/Resolved]
  - Musculoskeletal disorder [Recovered/Resolved]
  - Pain [Recovered/Resolved]
  - Tetany [Recovered/Resolved]
  - Neuralgia [Recovered/Resolved]
  - Bone pain [Recovered/Resolved]
